FAERS Safety Report 4559232-4 (Version None)
Quarter: 2005Q1

REPORT INFORMATION
  Report Type: 
  Country: None (occurrence: None)
  Receive Date: 20050124
  Receipt Date: 20030605
  Transmission Date: 20050727
  Serious: Yes (Hospitalization, Other)
  Sender: FDA-Public Use
  Company Number: US-MERCK-0306USA00738

PATIENT
  Age: 42 Year
  Sex: Male

DRUGS (7)
  1. VIOXX [Suspect]
     Indication: EPICONDYLITIS
     Route: 048
  2. VIOXX [Suspect]
     Route: 048
  3. LORTAB [Concomitant]
     Route: 065
  4. SOMA [Concomitant]
     Route: 065
  5. VIAGRA [Concomitant]
     Route: 065
  6. VICODIN [Concomitant]
     Route: 065
  7. TEMAZEPAM [Concomitant]
     Route: 065

REACTIONS (23)
  - ADVERSE EVENT [None]
  - ANGINA PECTORIS [None]
  - BLOOD PRESSURE INCREASED [None]
  - CARDIOMEGALY [None]
  - CHEST DISCOMFORT [None]
  - CONVULSION [None]
  - CORONARY ARTERY DISEASE [None]
  - CORONARY ARTERY RESTENOSIS [None]
  - CORONARY ARTERY STENOSIS [None]
  - CORONARY ARTERY THROMBOSIS [None]
  - DISCOMFORT [None]
  - EPICONDYLITIS [None]
  - EXTRASYSTOLES [None]
  - HOT FLUSH [None]
  - HYPERTENSION [None]
  - MITRAL VALVE INCOMPETENCE [None]
  - MYOCARDIAL INFARCTION [None]
  - PULMONARY HYPERTENSION [None]
  - RADIAL TUNNEL SYNDROME [None]
  - ROTATOR CUFF SYNDROME [None]
  - THROMBOSIS [None]
  - VENTRICULAR HYPERTROPHY [None]
  - VENTRICULAR HYPOKINESIA [None]
